FAERS Safety Report 26208595 (Version 1)
Quarter: 2025Q4

REPORT INFORMATION
  Report Type: Spontaneous
  Country: US (occurrence: None)
  Receive Date: 20251226
  Receipt Date: 20251226
  Transmission Date: 20260118
  Serious: Yes (Hospitalization)
  Sender: FDA-CTU
  Company Number: None

PATIENT
  Age: 43 Year
  Sex: Female

DRUGS (1)
  1. LENALIDOMIDE [Suspect]
     Active Substance: LENALIDOMIDE
     Indication: Plasma cell myeloma
     Dosage: 10MG  TAKE 1 CAPSULE BY MOUTH DAILY ON DAYS 1 TO 4 OF EACH WEEK THEN 20 DAYS OFF
     Route: 048

REACTIONS (2)
  - Therapy interrupted [None]
  - Cholecystectomy [None]
